FAERS Safety Report 22073258 (Version 1)
Quarter: 2023Q1

REPORT INFORMATION
  Report Type: Spontaneous
  Country: US (occurrence: US)
  Receive Date: 20230308
  Receipt Date: 20230308
  Transmission Date: 20230417
  Serious: Yes (Death, Hospitalization, Other)
  Sender: FDA-Public Use
  Company Number: US-LUPIN PHARMACEUTICALS INC.-2023-01834

PATIENT
  Age: 66 Year
  Sex: Female

DRUGS (2)
  1. AMLODIPINE [Suspect]
     Active Substance: AMLODIPINE BESYLATE
     Indication: Product used for unknown indication
     Dosage: UNK
     Route: 065
  2. CALCIUM [Suspect]
     Active Substance: CALCIUM
     Indication: Toxicity to various agents
     Dosage: UNK
     Route: 065

REACTIONS (9)
  - Electrocardiogram QT prolonged [Fatal]
  - Coma [Fatal]
  - Depressed level of consciousness [Fatal]
  - Metabolic acidosis [Fatal]
  - Haemolysis [Fatal]
  - Acute kidney injury [Fatal]
  - Hypotension [Fatal]
  - Toxicity to various agents [Fatal]
  - Off label use [Unknown]
